FAERS Safety Report 8474144-1 (Version None)
Quarter: 2012Q2

REPORT INFORMATION
  Report Type: 
  Country: None (occurrence: None)
  Receive Date: 20120628
  Receipt Date: 20120622
  Transmission Date: 20120825
  Serious: No
  Sender: FDA-Public Use
  Company Number: US-PFIZER INC-2012134720

PATIENT
  Sex: Male
  Weight: 81.633 kg

DRUGS (2)
  1. METFORMIN [Concomitant]
     Indication: DIABETES MELLITUS
     Dosage: 500 MG, 4X/DAY
  2. VIAGRA [Suspect]
     Dosage: 100 MG, UNK
     Route: 048
     Dates: start: 20120601, end: 20120601

REACTIONS (2)
  - ERECTILE DYSFUNCTION [None]
  - DRUG INEFFECTIVE [None]
